FAERS Safety Report 16837297 (Version 1)
Quarter: 2019Q3

REPORT INFORMATION
  Report Type: Spontaneous
  Country: FR (occurrence: FR)
  Receive Date: 20190923
  Receipt Date: 20190923
  Transmission Date: 20191005
  Serious: Yes (Other)
  Sender: FDA-Public Use
  Company Number: FR-ROCHE-2412980

PATIENT
  Age: 42 Year
  Sex: Female

DRUGS (4)
  1. XOLAIR [Suspect]
     Active Substance: OMALIZUMAB
     Dosage: 300 MG, BIW
     Route: 058
     Dates: start: 201901
  2. XYLOCAINE [Concomitant]
     Active Substance: LIDOCAINE HYDROCHLORIDE
     Indication: DENTAL OPERATION
     Dosage: UNK
     Route: 058
     Dates: start: 20190904
  3. XOLAIR [Suspect]
     Active Substance: OMALIZUMAB
     Dosage: 300 MG, BIW
     Route: 058
     Dates: start: 20190902
  4. XOLAIR [Suspect]
     Active Substance: OMALIZUMAB
     Indication: CHRONIC SPONTANEOUS URTICARIA
     Dosage: 300 MG, EVERY 3 WEEKS
     Route: 058
     Dates: start: 20180216, end: 201901

REACTIONS (4)
  - Oral herpes [Unknown]
  - Chronic spontaneous urticaria [Unknown]
  - Inappropriate schedule of product administration [Unknown]
  - Angioedema [Unknown]

NARRATIVE: CASE EVENT DATE: 20190904
